FAERS Safety Report 16837819 (Version 1)
Quarter: 2019Q3

REPORT INFORMATION
  Report Type: Spontaneous
  Country: US (occurrence: US)
  Receive Date: 20190923
  Receipt Date: 20190923
  Transmission Date: 20191005
  Serious: No
  Sender: FDA-Public Use
  Company Number: US-JNJFOC-20190914057

PATIENT
  Sex: Female
  Weight: 79.45 kg

DRUGS (1)
  1. PEPCID COMPLETE [Suspect]
     Active Substance: CALCIUM CARBONATE\FAMOTIDINE\MAGNESIUM HYDROXIDE
     Indication: DYSPEPSIA
     Dosage: AFTER EVERY MEAL
     Route: 048

REACTIONS (3)
  - Wound [Not Recovered/Not Resolved]
  - Product packaging issue [Unknown]
  - Inappropriate schedule of product administration [Unknown]
